FAERS Safety Report 9032111 (Version 3)
Quarter: 2013Q1

REPORT INFORMATION
  Report Type: Report from Study
  Country: US (occurrence: US)
  Receive Date: 20130122
  Receipt Date: 20130306
  Transmission Date: 20140127
  Serious: Yes (Hospitalization, Other)
  Sender: FDA-Public Use
  Company Number: US-ACTELION-A-NJ2012-75647

PATIENT
  Age: 59 Year
  Sex: Female

DRUGS (2)
  1. TRACLEER [Suspect]
     Indication: PULMONARY ARTERIAL HYPERTENSION
     Dosage: UNK
     Route: 048
     Dates: start: 201210
  2. LASIX [Concomitant]
     Dosage: 40 MG, TID

REACTIONS (5)
  - Cardiac failure congestive [Recovering/Resolving]
  - Pulmonary oedema [Recovering/Resolving]
  - Fluid retention [Recovering/Resolving]
  - Oedema peripheral [Recovering/Resolving]
  - Swelling [Recovering/Resolving]
